FAERS Safety Report 8886553 (Version 1)
Quarter: 2012Q4

REPORT INFORMATION
  Report Type: 
  Country: US (occurrence: US)
  Receive Date: 20121105
  Receipt Date: 20121105
  Transmission Date: 20130627
  Serious: Yes (Hospitalization)
  Sender: FDA-Public Use
  Company Number: US-ABBOTT-12P-163-1001565-00

PATIENT
  Age: 85 Year
  Sex: Female

DRUGS (3)
  1. TRICOR [Suspect]
     Indication: BLOOD CHOLESTEROL INCREASED
  2. LIPITOR [Suspect]
     Indication: BLOOD CHOLESTEROL INCREASED
  3. TYLENOL [Suspect]
     Indication: PAIN
     Route: 048

REACTIONS (5)
  - Malaise [Unknown]
  - Blood cholesterol decreased [Recovered/Resolved]
  - Blood disorder [Unknown]
  - Liver disorder [Unknown]
  - Overdose [Unknown]
